FAERS Safety Report 8156386 (Version 3)
Quarter: 2013Q1

REPORT INFORMATION
  Report Type: Report from Study
  Country: DE (occurrence: DE)
  Receive Date: 20110926
  Receipt Date: 20130129
  Transmission Date: 20140127
  Serious: Yes (Hospitalization, Other)
  Sender: FDA-Public Use
  Company Number: DE-ABBOTT-11P-062-0856408-00

PATIENT
  Age: 45 Year
  Sex: Male
  Weight: 84 kg

DRUGS (1)
  1. HUMIRA 40 MG/0.8 ML PEN [Suspect]
     Indication: PSORIATIC ARTHROPATHY
     Dosage: LONGER PERIOD  THAN EVERY OTHER WEEK
     Route: 058
     Dates: start: 20081113, end: 201108

REACTIONS (3)
  - Bursa disorder [Recovered/Resolved]
  - Pain [Unknown]
  - Arthropathy [Recovered/Resolved]
